FAERS Safety Report 17130763 (Version 5)
Quarter: 2021Q4

REPORT INFORMATION
  Report Type: Report from Study
  Country: GR (occurrence: GR)
  Receive Date: 20191209
  Receipt Date: 20211006
  Transmission Date: 20220303
  Serious: Yes (Hospitalization)
  Sender: FDA-Public Use
  Company Number: GR-BIOGEN-2019BI00814282

PATIENT
  Age: 3 Year
  Sex: Male
  Weight: 12 kg

DRUGS (6)
  1. SPINRAZA [Suspect]
     Active Substance: NUSINERSEN
     Indication: Spinal muscular atrophy
     Route: 037
     Dates: start: 20161220
  2. COLISTIN [Concomitant]
     Active Substance: COLISTIN
     Indication: Respiratory disorder
     Route: 055
     Dates: start: 201703, end: 20191129
  3. IPRATROPIUM BROMIDE [Concomitant]
     Active Substance: IPRATROPIUM BROMIDE
     Indication: Bronchial disorder
     Route: 065
     Dates: start: 201703, end: 20191129
  4. DOMPERIDONE [Concomitant]
     Active Substance: DOMPERIDONE
     Indication: Gastrointestinal motility disorder
     Route: 048
     Dates: start: 201803, end: 20191129
  5. NEXIUM [Concomitant]
     Active Substance: ESOMEPRAZOLE MAGNESIUM
     Indication: Gastrooesophageal reflux disease
     Route: 048
     Dates: start: 201803, end: 20191129
  6. MIRALAX [Concomitant]
     Active Substance: POLYETHYLENE GLYCOL 3350
     Indication: Constipation
     Dosage: 0.6
     Route: 048
     Dates: start: 201803, end: 20191129

REACTIONS (2)
  - Respiratory tract infection viral [Recovered/Resolved with Sequelae]
  - Respiratory tract infection bacterial [Recovered/Resolved with Sequelae]

NARRATIVE: CASE EVENT DATE: 20191117
